FAERS Safety Report 25998075 (Version 1)
Quarter: 2025Q4

REPORT INFORMATION
  Report Type: Spontaneous
  Country: CN (occurrence: CN)
  Receive Date: 20251105
  Receipt Date: 20251105
  Transmission Date: 20260118
  Serious: Yes (Hospitalization, Other)
  Sender: IPCA
  Company Number: CN-IPCA LABORATORIES LIMITED-IPC-2025-CN-002922

PATIENT

DRUGS (3)
  1. METOCLOPRAMIDE [Suspect]
     Active Substance: METOCLOPRAMIDE
     Indication: Product used for unknown indication
     Dosage: 70 DOSAGE FORM
     Route: 048
  2. CARBAZOCHROME [Suspect]
     Active Substance: CARBAZOCHROME
     Indication: Product used for unknown indication
     Dosage: 10 DOSAGE FORM
     Route: 048
  3. COENZYME Q10 [Suspect]
     Active Substance: DIETARY SUPPLEMENT\UBIDECARENONE
     Indication: Product used for unknown indication
     Dosage: 10 DOSAGE FORM
     Route: 048

REACTIONS (20)
  - Toxic encephalopathy [Recovering/Resolving]
  - Altered state of consciousness [Recovering/Resolving]
  - Suicidal ideation [Recovering/Resolving]
  - Dystonia [Recovering/Resolving]
  - Delirium [Recovering/Resolving]
  - Brain oedema [Recovering/Resolving]
  - Anaemia [Recovering/Resolving]
  - White matter lesion [Recovering/Resolving]
  - Crying [Recovering/Resolving]
  - Muscle twitching [Recovering/Resolving]
  - Dysarthria [Recovering/Resolving]
  - Dyskinesia [Recovering/Resolving]
  - Vomiting [Recovering/Resolving]
  - Salivary hypersecretion [Recovering/Resolving]
  - Sedation [Recovering/Resolving]
  - Extrapyramidal disorder [Recovering/Resolving]
  - Hypoproteinaemia [Recovering/Resolving]
  - Dehydration [Recovering/Resolving]
  - Toxicity to various agents [Recovering/Resolving]
  - Overdose [Unknown]
